FAERS Safety Report 13690121 (Version 3)
Quarter: 2017Q3

REPORT INFORMATION
  Report Type: Spontaneous
  Country: GB (occurrence: GB)
  Receive Date: 20170626
  Receipt Date: 20170707
  Transmission Date: 20171127
  Serious: Yes (Life-Threatening, Other)
  Sender: FDA-Public Use
  Company Number: GB-TELIGENT, INC-IGIL20170272

PATIENT
  Age: 35 Year
  Sex: Female
  Weight: 73.5 kg

DRUGS (1)
  1. RANITIDINE HYDROCHLORIDE. [Suspect]
     Active Substance: RANITIDINE HYDROCHLORIDE
     Indication: PROPHYLAXIS
     Dosage: 50 MG
     Route: 042
     Dates: start: 20170612, end: 20170612

REACTIONS (6)
  - Anaphylactic reaction [Recovered/Resolved]
  - Exposure during pregnancy [None]
  - Chest pain [Recovered/Resolved]
  - Foetal disorder [Recovered/Resolved]
  - Hypotension [Recovered/Resolved]
  - Circulatory collapse [Recovered/Resolved]

NARRATIVE: CASE EVENT DATE: 20170612
